FAERS Safety Report 9458902 (Version 1)
Quarter: 2013Q3

REPORT INFORMATION
  Report Type: Report from Study
  Country: JP (occurrence: JP)
  Receive Date: 20130814
  Receipt Date: 20130814
  Transmission Date: 20140515
  Serious: Yes (Hospitalization)
  Sender: FDA-Public Use
  Company Number: JP-GLAXOSMITHKLINE-B0914462A

PATIENT
  Age: 81 Year
  Sex: Female

DRUGS (9)
  1. ARIXTRA [Suspect]
     Indication: PULMONARY EMBOLISM
     Route: 058
     Dates: start: 20121231, end: 20130102
  2. WARFARIN POTASSIUM [Concomitant]
     Indication: PULMONARY EMBOLISM
     Route: 048
     Dates: start: 20121231
  3. SPIROPENT [Concomitant]
     Route: 048
  4. AMLODIPINE [Concomitant]
     Route: 048
  5. SIGMART [Concomitant]
     Route: 048
  6. VESICARE [Concomitant]
     Route: 048
  7. PIROLACTON [Concomitant]
     Route: 048
  8. LUPRAC [Concomitant]
     Route: 048
  9. D-ALFA [Concomitant]
     Route: 048

REACTIONS (3)
  - Large intestinal haemorrhage [Recovered/Resolved]
  - Melaena [Recovered/Resolved]
  - Cholecystitis acute [Recovered/Resolved]
